FAERS Safety Report 7532465-0 (Version None)
Quarter: 2011Q2

REPORT INFORMATION
  Report Type: 
  Country: None (occurrence: None)
  Receive Date: 20110608
  Receipt Date: 20110526
  Transmission Date: 20111010
  Serious: Yes (Other)
  Sender: FDA-Public Use
  Company Number: PHHY2011CH45240

PATIENT
  Age: 51 Year
  Sex: Female

DRUGS (4)
  1. ZOMETA [Suspect]
     Dosage: UNK
     Dates: start: 20100201
  2. ZOMETA [Suspect]
     Dosage: UNK
     Dates: start: 20110430
  3. ETOPOSIDE [Concomitant]
     Dosage: 4 CYCLES
     Dates: start: 20100504, end: 20100701
  4. CISPLATIN [Concomitant]
     Dosage: 4 CYCLES
     Dates: start: 20100504, end: 20100701

REACTIONS (1)
  - PULMONARY FIBROSIS [None]
